FAERS Safety Report 9198945 (Version 1)
Quarter: 2013Q1

REPORT INFORMATION
  Report Type: Report from Study
  Country: FR (occurrence: FR)
  Receive Date: 20130329
  Receipt Date: 20130329
  Transmission Date: 20140127
  Serious: Yes (Hospitalization)
  Sender: FDA-Public Use
  Company Number: FR-009507513-1211FRA005868

PATIENT
  Age: 59 Year
  Sex: Male
  Weight: 110 kg

DRUGS (11)
  1. ISENTRESS [Suspect]
     Indication: HIV INFECTION
     Dosage: 400 MG, BID
     Route: 048
     Dates: start: 20120928
  2. CORTANCYL [Suspect]
     Indication: IMMUNOSUPPRESSANT DRUG THERAPY
     Dosage: 20 MG, QD
     Route: 048
     Dates: start: 20120928, end: 20121010
  3. CORTANCYL [Suspect]
     Dosage: 15 MG, QD
     Route: 048
     Dates: start: 20121011
  4. CORTANCYL [Suspect]
     Dosage: 7.5 MG, QD
     Route: 048
     Dates: start: 20120926, end: 20120928
  5. PROGRAF [Suspect]
     Indication: IMMUNOSUPPRESSANT DRUG THERAPY
     Dosage: 6 MG, BID
     Route: 048
     Dates: start: 20120930
  6. PROGRAF [Suspect]
     Dosage: 12.5 MG, QD
     Route: 048
     Dates: start: 20120926, end: 20120930
  7. KIVEXA [Concomitant]
     Indication: HIV INFECTION
     Dosage: 1 DF, QD
     Route: 048
     Dates: start: 20120928
  8. NOVOMIX [Concomitant]
     Indication: DIABETES MELLITUS
     Dosage: 70 IU, QD
     Route: 058
     Dates: start: 19961025, end: 20121002
  9. CELLCEPT [Concomitant]
     Indication: IMMUNOSUPPRESSANT DRUG THERAPY
     Dosage: 500 MG, QD
     Dates: start: 20120930
  10. BACTRIM [Concomitant]
     Indication: ANTI-INFECTIVE THERAPY
     Dosage: UNK
     Dates: start: 2009
  11. ZELITREX [Concomitant]
     Indication: ANTI-INFECTIVE THERAPY
     Dosage: UNK

REACTIONS (3)
  - Diabetes mellitus inadequate control [Recovering/Resolving]
  - Pneumonia [Recovered/Resolved]
  - Influenza like illness [Recovered/Resolved]
